FAERS Safety Report 8086073-6 (Version None)
Quarter: 2012Q1

REPORT INFORMATION
  Report Type: 
  Country: None (occurrence: None)
  Receive Date: 20120128
  Receipt Date: 20110603
  Transmission Date: 20120608
  Serious: No
  Sender: FDA-Public Use
  Company Number: US-ABBOTT-11P-163-0730176-00

PATIENT
  Sex: Female
  Weight: 52.21 kg

DRUGS (7)
  1. NEURONTIN [Concomitant]
     Indication: NEURALGIA
     Route: 048
  2. WELLBUTRIN [Concomitant]
     Indication: DEPRESSION
     Route: 048
  3. RESTASIS [Concomitant]
     Indication: EYE INFLAMMATION
     Route: 047
  4. ZOLOFT [Concomitant]
     Indication: DEPRESSION
     Route: 048
  5. SALINE TEARS [Concomitant]
     Indication: DRY EYE
     Route: 047
  6. PREDNISONE TAB [Concomitant]
     Indication: EYE INFLAMMATION
     Route: 047
  7. HUMIRA [Suspect]
     Indication: RHEUMATOID ARTHRITIS
     Route: 058
     Dates: start: 20100501

REACTIONS (2)
  - INJECTION SITE PAIN [None]
  - INCORRECT DOSE ADMINISTERED [None]
